FAERS Safety Report 9606182 (Version 2)
Quarter: 2013Q4

REPORT INFORMATION
  Report Type: Spontaneous
  Country: US (occurrence: US)
  Receive Date: 20131008
  Receipt Date: 20131008
  Transmission Date: 20140711
  Serious: No
  Sender: FDA-Public Use
  Company Number: US-AMGEN-USASP2013043471

PATIENT
  Age: 75 Year
  Sex: Female
  Weight: 69.04 kg

DRUGS (9)
  1. PROLIA [Suspect]
     Indication: OSTEOPOROSIS
     Dosage: 60 MG, Q6MO
     Route: 058
     Dates: start: 20121203, end: 20121203
  2. ATENOLOL [Concomitant]
  3. ATORVASTATIN [Concomitant]
  4. BENICAR [Concomitant]
  5. CALCIUM [Concomitant]
  6. MULTIVITAMIN                       /00097801/ [Concomitant]
  7. NORVASC [Concomitant]
  8. SYNTHROID [Concomitant]
  9. SINGULAIR [Concomitant]

REACTIONS (1)
  - Eczema [Recovered/Resolved]
